FAERS Safety Report 7974812-1 (Version None)
Quarter: 2011Q4

REPORT INFORMATION
  Report Type: 
  Country: None (occurrence: None)
  Receive Date: 20111213
  Receipt Date: 20111207
  Transmission Date: 20120403
  Serious: Yes (Other)
  Sender: FDA-Public Use
  Company Number: IE-ABBOTT-11P-229-0875163-00

PATIENT
  Age: 11 Year
  Sex: Male

DRUGS (9)
  1. LAMOTRIGINE [Concomitant]
     Indication: PRODUCT USED FOR UNKNOWN INDICATION
     Dates: start: 20101214
  2. MERCAPTOPURINE [Concomitant]
     Indication: PRODUCT USED FOR UNKNOWN INDICATION
     Dates: start: 20090129
  3. VALPROATE SODIUM [Concomitant]
     Indication: PRODUCT USED FOR UNKNOWN INDICATION
  4. VALPROIC ACID [Suspect]
     Indication: EPILEPSY
     Dosage: 1000MG DAILY, PROLONGED-RELEASE
     Route: 048
  5. SEPTRIN PAEDIATRIC [Concomitant]
     Indication: PRODUCT USED FOR UNKNOWN INDICATION
     Dates: start: 20090202
  6. PREDNISOLONE [Concomitant]
     Indication: PRODUCT USED FOR UNKNOWN INDICATION
     Dates: start: 20100921
  7. CORTICOSTEROID NOS [Concomitant]
     Indication: PRODUCT USED FOR UNKNOWN INDICATION
  8. VALPROIC ACID [Suspect]
     Dosage: 500MG;PROLONGED-RELEASE; TWICE A DAY
     Route: 048
     Dates: start: 20110504
  9. METHOTREXATE [Concomitant]
     Indication: PRODUCT USED FOR UNKNOWN INDICATION
     Dates: start: 20090210

REACTIONS (4)
  - EPILEPSY [None]
  - DRUG INEFFECTIVE [None]
  - CONVULSION [None]
  - PRODUCT QUALITY ISSUE [None]
